FAERS Safety Report 5391029-8 (Version None)
Quarter: 2007Q3

REPORT INFORMATION
  Report Type: 
  Country: None (occurrence: None)
  Receive Date: 20070717
  Receipt Date: 20070710
  Transmission Date: 20080115
  Serious: Yes (Death, Other)
  Sender: FDA-Public Use
  Company Number: 163-21880-07051393

PATIENT
  Age: 82 Year
  Sex: Female

DRUGS (1)
  1. REVLIMID [Suspect]
     Indication: MULTIPLE MYELOMA
     Dosage: 25 MG, 1 IN 1 D, ORAL
     Route: 048
     Dates: start: 20070326, end: 20070301

REACTIONS (11)
  - BONE PAIN [None]
  - CONJUNCTIVITIS [None]
  - DYSPNOEA [None]
  - FATIGUE [None]
  - MALIGNANT NEOPLASM PROGRESSION [None]
  - MULTIPLE MYELOMA [None]
  - NIGHT SWEATS [None]
  - PAIN [None]
  - PERIORBITAL OEDEMA [None]
  - RENAL FAILURE [None]
  - VISUAL DISTURBANCE [None]
